FAERS Safety Report 5179133-0 (Version None)
Quarter: 2006Q4

REPORT INFORMATION
  Report Type: 
  Country: None (occurrence: None)
  Receive Date: 20061219
  Receipt Date: 20061204
  Transmission Date: 20070319
  Serious: Yes (Other)
  Sender: FDA-Public Use
  Company Number: US-KINGPHARMUSA00001-K200601554

PATIENT
  Age: 55 Year
  Sex: Female

DRUGS (8)
  1. EPINEPHRINE [Suspect]
     Indication: ANAPHYLAXIS TREATMENT
     Dosage: 100 UG, SINGLE
     Route: 042
  2. ALLEGRA                            /01314202/ [Concomitant]
  3. PHENERGAN                          /00033001/ [Concomitant]
     Indication: POST PROCEDURAL NAUSEA
     Route: 042
  4. FENTANYL                           /00174602/ [Concomitant]
     Indication: POST PROCEDURAL NAUSEA
     Route: 042
  5. ZOFRAN [Concomitant]
     Indication: POST PROCEDURAL NAUSEA
     Route: 042
  6. SCOPOLAMINE                        /00008701/ [Concomitant]
     Dosage: UNK, UNK
     Route: 058
  7. HYDROCORTISONUM HEMISUCCINATUM [Concomitant]
     Dosage: 100 MG, UNK
  8. BENADRYL                           /00000402/ [Concomitant]
     Indication: ANAPHYLAXIS TREATMENT
     Dosage: 50 MG, SINGLE
     Route: 042

REACTIONS (9)
  - CARDIOMYOPATHY [None]
  - CHEST PAIN [None]
  - ELECTROCARDIOGRAM ST SEGMENT ELEVATION [None]
  - HYPOTENSION [None]
  - MYOCARDIAL ISCHAEMIA [None]
  - PRESYNCOPE [None]
  - TROPONIN T INCREASED [None]
  - VASOSPASM [None]
  - VENTRICULAR TACHYCARDIA [None]
